FAERS Safety Report 7207981-1 (Version None)
Quarter: 2010Q4

REPORT INFORMATION
  Report Type: 
  Country: None (occurrence: None)
  Receive Date: 20101230
  Receipt Date: 20101230
  Transmission Date: 20110411
  Serious: No
  Sender: FDA-Public Use
  Company Number: None

PATIENT
  Sex: Male
  Weight: 79.8331 kg

DRUGS (1)
  1. RESTASIS [Suspect]
     Dates: start: 20101213

REACTIONS (2)
  - EYE IRRITATION [None]
  - EYE PRURITUS [None]
